FAERS Safety Report 5157669-6 (Version None)
Quarter: 2006Q4

REPORT INFORMATION
  Report Type: 
  Country: None (occurrence: None)
  Receive Date: 20061127
  Receipt Date: 20051012
  Transmission Date: 20070319
  Serious: Yes (Hospitalization)
  Sender: FDA-Public Use
  Company Number: US-ROCHE-421218

PATIENT
  Age: 61 Year
  Sex: Female
  Weight: 70.8 kg

DRUGS (3)
  1. COPEGUS [Suspect]
     Indication: HEPATITIS C
     Route: 048
     Dates: start: 20050717, end: 20050815
  2. PEG-INTRON [Suspect]
     Indication: HEPATITIS C
     Dosage: REPORTED AS INJECTABLE POWDER.
     Route: 050
     Dates: start: 20050717, end: 20050815
  3. TOPROL-XL [Concomitant]
     Route: 048

REACTIONS (1)
  - DEHYDRATION [None]
